FAERS Safety Report 6015071-9 (Version None)
Quarter: 2008Q4

REPORT INFORMATION
  Report Type: 
  Country: None (occurrence: None)
  Receive Date: 20081218
  Receipt Date: 20081203
  Transmission Date: 20090506
  Serious: Yes (Hospitalization)
  Sender: FDA-Public Use
  Company Number: KV200800869

PATIENT
  Age: 84 Year
  Sex: Female
  Weight: 90.7 kg

DRUGS (2)
  1. MORPHINE SULFATE [Suspect]
     Indication: ABDOMINAL PAIN UPPER
     Dosage: 7.5 MG, ORAL
     Route: 048
     Dates: start: 20080913, end: 20080914
  2. MORPHINE SULFATE [Suspect]
     Indication: BACK PAIN
     Dosage: 7.5 MG, ORAL
     Route: 048
     Dates: start: 20080913, end: 20080914

REACTIONS (7)
  - ABDOMINAL PAIN UPPER [None]
  - DELUSION [None]
  - DIZZINESS [None]
  - HYPERHIDROSIS [None]
  - HYPOTENSION [None]
  - LOSS OF CONSCIOUSNESS [None]
  - PRODUCT QUALITY ISSUE [None]
